FAERS Safety Report 6437945-7 (Version None)
Quarter: 2009Q4

REPORT INFORMATION
  Report Type: 
  Country: None (occurrence: None)
  Receive Date: 20091112
  Receipt Date: 20081016
  Transmission Date: 20100525
  Serious: No
  Sender: FDA-Public Use
  Company Number: US-ASTRAZENECA-2009UW15773

PATIENT
  Sex: Female

DRUGS (1)
  1. PRILOSEC OTC [Suspect]
     Route: 048
     Dates: end: 20081016

REACTIONS (4)
  - CHEST DISCOMFORT [None]
  - PRURITUS [None]
  - TREMOR [None]
  - URTICARIA [None]
